FAERS Safety Report 7677440-0 (Version None)
Quarter: 2011Q3

REPORT INFORMATION
  Report Type: 
  Country: None (occurrence: None)
  Receive Date: 20110811
  Receipt Date: 20110215
  Transmission Date: 20111222
  Serious: Yes (Other)
  Sender: FDA-Public Use
  Company Number: US-BRISTOL-MYERS SQUIBB COMPANY-15398563

PATIENT
  Age: 23 Year
  Sex: Female

DRUGS (2)
  1. RITONAVIR [Suspect]
  2. REYATAZ [Suspect]

REACTIONS (2)
  - PREGNANCY [None]
  - JAUNDICE [None]
